FAERS Safety Report 25249567 (Version 6)
Quarter: 2025Q3

REPORT INFORMATION
  Report Type: Spontaneous
  Country: EU (occurrence: EU)
  Receive Date: 20250429
  Receipt Date: 20250916
  Transmission Date: 20251021
  Serious: Yes (Hospitalization, Other)
  Sender: ROCHE
  Company Number: EU-ROCHE-10000169997

PATIENT
  Age: 61 Year
  Sex: Female
  Weight: 81 kg

DRUGS (1)
  1. PHESGO [Suspect]
     Active Substance: HYALURONIDASE-ZZXF\PERTUZUMAB\TRASTUZUMAB
     Indication: Breast cancer
     Route: 058
     Dates: start: 20241025

REACTIONS (24)
  - Overdose [Unknown]
  - Malaise [Recovering/Resolving]
  - Fluid retention [Recovering/Resolving]
  - Weight increased [Recovering/Resolving]
  - Epistaxis [Unknown]
  - Diarrhoea [Recovering/Resolving]
  - Dyspepsia [Unknown]
  - Cough [Recovering/Resolving]
  - Vision blurred [Unknown]
  - Lacrimation increased [Recovering/Resolving]
  - White blood cell count decreased [Unknown]
  - Ill-defined disorder [Unknown]
  - Hypertrophic cardiomyopathy [Unknown]
  - Heart rate increased [Recovering/Resolving]
  - Rhinorrhoea [Recovering/Resolving]
  - Ventricular tachycardia [Unknown]
  - Cardiac failure [Unknown]
  - Acute kidney injury [Unknown]
  - Ill-defined disorder [Unknown]
  - Hypotension [Unknown]
  - Dyspnoea [Unknown]
  - Syncope [Unknown]
  - Cardiomyopathy [Unknown]
  - Sinus tachycardia [Unknown]

NARRATIVE: CASE EVENT DATE: 20250101
